FAERS Safety Report 4659271-9 (Version None)
Quarter: 2005Q2

REPORT INFORMATION
  Report Type: 
  Country: None (occurrence: None)
  Receive Date: 20050510
  Receipt Date: 20050428
  Transmission Date: 20051028
  Serious: Yes (Hospitalization, Congenital Anomaly)
  Sender: FDA-Public Use
  Company Number: S05-FRA-01659-02

PATIENT
  Age: 0 Day
  Sex: Male
  Weight: 3 kg

DRUGS (3)
  1. CITALOPRAM HYDROBROMIDE [Suspect]
     Route: 064
     Dates: start: 20030501, end: 20030601
  2. XANAX [Suspect]
     Dates: start: 20030501, end: 20030601
  3. BUSPAR [Suspect]
     Route: 064
     Dates: start: 20030501, end: 20030601

REACTIONS (2)
  - DRUG EXPOSURE DURING PREGNANCY [None]
  - PIERRE ROBIN SYNDROME [None]
